FAERS Safety Report 4480079-1 (Version None)
Quarter: 2004Q3

REPORT INFORMATION
  Report Type: 
  Country: None (occurrence: None)
  Receive Date: 20040923
  Receipt Date: 20040607
  Transmission Date: 20050211
  Serious: No
  Sender: FDA-Public Use
  Company Number: USA040669533

PATIENT
  Age: 74 Year
  Sex: Female

DRUGS (2)
  1. FORTEO [Suspect]
     Indication: OSTEOPOROSIS
     Dates: start: 20040607
  2. FOSAMAX [Concomitant]

REACTIONS (2)
  - INJECTION SITE ERYTHEMA [None]
  - SKIN DISCOLOURATION [None]
